FAERS Safety Report 6925469-X (Version None)
Quarter: 2010Q3

REPORT INFORMATION
  Report Type: 
  Country: None (occurrence: None)
  Receive Date: 20100816
  Receipt Date: 20100809
  Transmission Date: 20110219
  Serious: Yes (Death, Hospitalization)
  Sender: FDA-Public Use
  Company Number: US-ROCHE-716676

PATIENT
  Sex: Male
  Weight: 84.4 kg

DRUGS (2)
  1. BEVACIZUMAB [Suspect]
     Dosage: DOSE: UNKNOWN
     Route: 065
     Dates: start: 20100526, end: 20100707
  2. IPILIMUMAB [Suspect]
     Dosage: EVERY 3 WEEKS X 4-EVERY 3 MONTH
     Route: 065
     Dates: start: 20100526, end: 20100707

REACTIONS (14)
  - ABDOMINAL PAIN [None]
  - ALANINE AMINOTRANSFERASE INCREASED [None]
  - ASPARTATE AMINOTRANSFERASE INCREASED [None]
  - BLOOD GLUCOSE INCREASED [None]
  - DISEASE PROGRESSION [None]
  - FATIGUE [None]
  - HAEMATOCRIT DECREASED [None]
  - HAEMOGLOBIN DECREASED [None]
  - LYMPHOCYTE COUNT DECREASED [None]
  - MALIGNANT NEOPLASM PROGRESSION [None]
  - METASTATIC MALIGNANT MELANOMA [None]
  - NEUTROPHIL COUNT INCREASED [None]
  - RED BLOOD CELL COUNT DECREASED [None]
  - RED CELL DISTRIBUTION WIDTH INCREASED [None]
